FAERS Safety Report 7495601-0 (Version None)
Quarter: 2011Q2

REPORT INFORMATION
  Report Type: 
  Country: None (occurrence: None)
  Receive Date: 20110523
  Receipt Date: 20110513
  Transmission Date: 20111010
  Serious: Yes (Hospitalization)
  Sender: FDA-Public Use
  Company Number: US-JNJFOC-20110506244

PATIENT
  Sex: Female

DRUGS (1)
  1. FENTANYL [Suspect]
     Indication: TEMPOROMANDIBULAR JOINT SYNDROME
     Route: 065

REACTIONS (1)
  - UNRESPONSIVE TO STIMULI [None]
